FAERS Safety Report 4300342-4 (Version None)
Quarter: 2004Q1

REPORT INFORMATION
  Report Type: 
  Country: None (occurrence: None)
  Receive Date: 20040218
  Receipt Date: 20040209
  Transmission Date: 20041129
  Serious: Yes (Hospitalization, Disabling, Other)
  Sender: FDA-Public Use
  Company Number: 2003035058

PATIENT
  Age: 26 Year
  Sex: Male

DRUGS (5)
  1. ZITHROMAX [Suspect]
     Indication: PHARYNGOLARYNGEAL PAIN
     Dosage: DAILY, ORAL
     Route: 048
     Dates: start: 20000711, end: 20000101
  2. ZITHROMAX [Suspect]
     Indication: PYREXIA
     Dosage: DAILY, ORAL
     Route: 048
     Dates: start: 20000711, end: 20000101
  3. CARBAMAZEPINE (CARMAZEPINE) [Suspect]
     Indication: AFFECTIVE DISORDER
     Dosage: ORAL
     Route: 048
     Dates: start: 20000628, end: 20000101
  4. OLANZAPINE [Suspect]
     Indication: DEPRESSION
     Dosage: ORAL
     Route: 048
     Dates: end: 20000912
  5. VENLAFAXINE HCL [Concomitant]

REACTIONS (30)
  - AGGRESSION [None]
  - BLOOD GLUCOSE INCREASED [None]
  - CHILLS [None]
  - DECREASED APPETITE [None]
  - DEPRESSION [None]
  - DRUG INTERACTION [None]
  - HERPES VIRUS INFECTION [None]
  - HYPERSENSITIVITY [None]
  - INSOMNIA [None]
  - LEUKOCYTOCLASTIC VASCULITIS [None]
  - MALAISE [None]
  - NASAL CONGESTION [None]
  - ORAL CANDIDIASIS [None]
  - OROPHARYNGEAL SWELLING [None]
  - OTORRHOEA [None]
  - PHARYNGOLARYNGEAL PAIN [None]
  - PHOTOSENSITIVITY REACTION [None]
  - PRURITUS [None]
  - PSYCHOSOMATIC DISEASE [None]
  - RHINITIS ALLERGIC [None]
  - SKIN BURNING SENSATION [None]
  - SKIN TIGHTNESS [None]
  - STEVENS-JOHNSON SYNDROME [None]
  - SWOLLEN TONGUE [None]
  - TENSION HEADACHE [None]
  - TINEA CRURIS [None]
  - TOXIC EPIDERMAL NECROLYSIS [None]
  - UPPER GASTROINTESTINAL HAEMORRHAGE [None]
  - VISION BLURRED [None]
  - WEIGHT DECREASED [None]
